FAERS Safety Report 9702018 (Version 1)
Quarter: 2013Q4

REPORT INFORMATION
  Report Type: Spontaneous
  Country: US (occurrence: US)
  Receive Date: 20131121
  Receipt Date: 20131121
  Transmission Date: 20140711
  Serious: No
  Sender: FDA-Public Use
  Company Number: US-BAYER-2013-142146

PATIENT
  Age: 75 Year
  Sex: Female
  Weight: 77.1 kg

DRUGS (2)
  1. ALEVE TABLET [Suspect]
     Indication: ARTHRALGIA
     Dosage: 2 DF, BID
     Route: 048
     Dates: start: 201310
  2. BAYER ASPIRIN SUGAR FREE LOW DOSE ENTERIC [Concomitant]
     Dosage: 1 DF, QD

REACTIONS (3)
  - Blood pressure increased [None]
  - Incorrect drug administration duration [None]
  - Extra dose administered [None]
